FAERS Safety Report 12729154 (Version 4)
Quarter: 2017Q2

REPORT INFORMATION
  Report Type: Report from Study
  Country: US (occurrence: US)
  Receive Date: 20160909
  Receipt Date: 20170615
  Transmission Date: 20170830
  Serious: Yes (Hospitalization, Other)
  Sender: FDA-Public Use
  Company Number: US-JNJFOC-20160905041

PATIENT
  Age: 67 Year
  Sex: Male

DRUGS (4)
  1. NIACIN. [Concomitant]
     Active Substance: NIACIN
  2. IMBRUVICA [Suspect]
     Active Substance: IBRUTINIB
     Indication: CHRONIC LYMPHOCYTIC LEUKAEMIA
     Route: 048
     Dates: start: 20161001
  3. IMBRUVICA [Suspect]
     Active Substance: IBRUTINIB
     Indication: CHRONIC LYMPHOCYTIC LEUKAEMIA
     Route: 048
     Dates: start: 20150625
  4. DOXYCYCLINE. [Concomitant]
     Active Substance: DOXYCYCLINE

REACTIONS (8)
  - Lung adenocarcinoma stage IV [Not Recovered/Not Resolved]
  - Pneumothorax [Unknown]
  - Neoplasm malignant [Unknown]
  - Pneumonia [Unknown]
  - Road traffic accident [Unknown]
  - Pleural effusion [Unknown]
  - Drug dose omission [Unknown]
  - Nodule [Unknown]

NARRATIVE: CASE EVENT DATE: 20160830
